FAERS Safety Report 9566622 (Version 2)
Quarter: 2013Q4

REPORT INFORMATION
  Report Type: Report from Study
  Country: BR (occurrence: BR)
  Receive Date: 20130930
  Receipt Date: 20131030
  Transmission Date: 20140711
  Serious: No
  Sender: FDA-Public Use
  Company Number: PHHY2013BR108997

PATIENT
  Sex: Female
  Weight: 67 kg

DRUGS (12)
  1. EXELON PATCH [Suspect]
     Indication: MEMORY IMPAIRMENT
     Dosage: 4.6 MG, UNK
     Route: 062
     Dates: start: 201307
  2. EXELON PATCH [Suspect]
     Indication: COGNITIVE DISORDER
  3. EXELON PATCH [Suspect]
     Indication: OFF LABEL USE
  4. DORFLEX [Concomitant]
     Indication: ARTHRITIS
     Dosage: 1 DF, QD (IN THE MORNING, MANY YEAR AGO (BEFORE SHE STARTED USING EXELON PATCH 5))
     Route: 048
  5. SELOZOK [Concomitant]
     Indication: BLOOD PRESSURE ABNORMAL
     Dosage: 1 DF, QD(IN THE MORNING, 2 YEARS AGO APPROXIMATELY)
     Route: 048
  6. NIMESULIDE [Concomitant]
     Indication: ARTHRITIS
     Dosage: 1 DF, QD (IN THE MORNING,MANY YEAR AGO (BEFORE SHE STARTED USING EXELON PATCH 5))
     Route: 048
  7. VERTIX//FLUNARIZINE DIHYDROCHLORIDE [Concomitant]
     Indication: DIZZINESS
     Dosage: 1 DF, QD (IN THE MORNING, 2 YEARS AGO APPROXIMATELY)
     Route: 048
  8. ZYLORIC [Concomitant]
     Dosage: 1 DF, QD (AT NIGHT, 6 MONTHS AGO APPROXIMATELY)
     Route: 048
  9. ROSUVAS [Concomitant]
     Indication: BLOOD CHOLESTEROL
     Dosage: 1 DF, QD (AT NIGHT, 6 MONTHS AGO APPROXIMATELY)
     Route: 048
  10. NEUROVIT [Concomitant]
     Indication: EYE DISORDER
     Dosage: UNK UKN, UNK
  11. CHLORELLA VULGARIS [Concomitant]
     Dosage: UNK UKN, QD (IN THE MORNING)
  12. OMEPRAZOLE [Concomitant]
     Indication: ABDOMINAL DISCOMFORT
     Dosage: 1 DF, QD (FASTING, MANY YEAR AGO (BEFORE SHE STARTED USING EXELON PATCH 5))
     Route: 048

REACTIONS (4)
  - Nervousness [Recovering/Resolving]
  - Anxiety [Recovering/Resolving]
  - Dizziness [Recovering/Resolving]
  - Memory impairment [Recovering/Resolving]
